FAERS Safety Report 26154880 (Version 1)
Quarter: 2025Q4

REPORT INFORMATION
  Report Type: Spontaneous
  Country: US (occurrence: US)
  Receive Date: 20251215
  Receipt Date: 20251215
  Transmission Date: 20260118
  Serious: No
  Sender: SPECGX
  Company Number: US-SPECGX-T202500439

PATIENT
  Sex: Male

DRUGS (1)
  1. FENTANYL TRANSDERMAL SYSTEM [Suspect]
     Active Substance: FENTANYL
     Indication: Pain
     Dosage: 12 MCG (CHANGE EVERY 3 DAYS)
     Route: 062

REACTIONS (2)
  - Drug screen negative [Unknown]
  - Product adhesion issue [Unknown]
